FAERS Safety Report 6120893-X (Version None)
Quarter: 2009Q1

REPORT INFORMATION
  Report Type: 
  Country: None (occurrence: None)
  Receive Date: 20090317
  Receipt Date: 20090305
  Transmission Date: 20090719
  Serious: Yes (Hospitalization, Other)
  Sender: FDA-Public Use
  Company Number: GB-TEVA-187028ISR

PATIENT
  Age: 63 Year
  Sex: Male

DRUGS (4)
  1. FUROSEMIDE [Suspect]
  2. IRBESARTAN [Suspect]
  3. ACETYLSALICYLIC ACID [Suspect]
  4. ATORVASTATIN [Suspect]

REACTIONS (1)
  - CORONARY ARTERY BYPASS [None]
